FAERS Safety Report 4431765-0 (Version None)
Quarter: 2004Q3

REPORT INFORMATION
  Report Type: 
  Country: None (occurrence: None)
  Receive Date: 20040818
  Receipt Date: 20040728
  Transmission Date: 20050211
  Serious: Yes (Hospitalization)
  Sender: FDA-Public Use
  Company Number: USA040874217

PATIENT
  Age: 81 Year
  Sex: Female
  Weight: 50 kg

DRUGS (6)
  1. HUMULIN L [Suspect]
     Dosage: 18 U IN THE MORNING
  2. NOVOLOG [Concomitant]
  3. LASIX     /SWE/ (FUROSEMIDE) [Concomitant]
  4. NITROGLYCERIN [Concomitant]
  5. COREG [Concomitant]
  6. LANOXIN [Concomitant]

REACTIONS (3)
  - NAUSEA [None]
  - PERICARDIAL EFFUSION [None]
  - VOMITING [None]
